FAERS Safety Report 14615449 (Version 3)
Quarter: 2025Q1

REPORT INFORMATION
  Report Type: Spontaneous
  Country: US (occurrence: US)
  Receive Date: 20180308
  Receipt Date: 20250121
  Transmission Date: 20250409
  Serious: Yes (Other)
  Sender: MERCK
  Company Number: US-009507513-1803USA000039

PATIENT

DRUGS (1)
  1. ZOCOR [Interacting]
     Active Substance: SIMVASTATIN
     Route: 048

REACTIONS (1)
  - Drug interaction [Unknown]
